FAERS Safety Report 10184826 (Version 2)
Quarter: 2014Q2

REPORT INFORMATION
  Report Type: Spontaneous
  Country: US (occurrence: None)
  Receive Date: 20140519
  Receipt Date: 20140612
  Transmission Date: 20141212
  Serious: Yes (Other)
  Sender: FDA-Public Use
  Company Number: 2014P1004133

PATIENT
  Age: 17 Year
  Sex: Female

DRUGS (2)
  1. MYORISAN [Suspect]
     Indication: ACNE
     Dates: start: 20140408, end: 20140508
  2. ELOCON CREAM [Concomitant]

REACTIONS (2)
  - Vision blurred [None]
  - Haematochezia [None]
